APPROVED DRUG PRODUCT: LEVETIRACETAM
Active Ingredient: LEVETIRACETAM
Strength: 500MG/5ML (100MG/ML)
Dosage Form/Route: INJECTABLE;INTRAVENOUS
Application: A202869 | Product #001 | TE Code: AP
Applicant: HOSPIRA INC
Approved: Apr 6, 2012 | RLD: No | RS: No | Type: RX